FAERS Safety Report 12700482 (Version 1)
Quarter: 2016Q3

REPORT INFORMATION
  Report Type: Spontaneous
  Country: US (occurrence: US)
  Receive Date: 20160830
  Receipt Date: 20160830
  Transmission Date: 20161109
  Serious: No
  Sender: FDA-Public Use
  Company Number: US-SA-2016SA064056

PATIENT
  Age: 37 Year
  Sex: Male
  Weight: 52.1 kg

DRUGS (11)
  1. FABRAZYME [Suspect]
     Active Substance: AGALSIDASE BETA
     Indication: LIPIDOSIS
     Route: 041
  2. VITRON-C [Concomitant]
     Dosage: AS DIRECTED
     Dates: start: 20121206
  3. VITAMIN D [Concomitant]
     Active Substance: CHOLECALCIFEROL
     Dosage: AS DIRECTED
     Dates: start: 20121206
  4. FABRAZYME [Suspect]
     Active Substance: AGALSIDASE BETA
     Indication: LIPIDOSIS
     Route: 041
  5. PROCRIT [Concomitant]
     Active Substance: ERYTHROPOIETIN
     Dosage: AS DIRECTED
     Dates: start: 20121206
  6. FABRAZYME [Suspect]
     Active Substance: AGALSIDASE BETA
     Indication: LIPIDOSIS
     Route: 041
  7. NEPHRO-VITE RX [Concomitant]
     Dosage: AS DIRECTED
     Dates: start: 20121206
  8. NEURONTIN [Concomitant]
     Active Substance: GABAPENTIN
     Dosage: AS DIRECTED
     Dates: start: 20121206
  9. FABRAZYME [Suspect]
     Active Substance: AGALSIDASE BETA
     Indication: LIPIDOSIS
     Route: 041
  10. PRINIVIL [Concomitant]
     Active Substance: LISINOPRIL
     Dosage: AS DIRECTED
     Dates: start: 20121206
  11. ASPIRIN. [Concomitant]
     Active Substance: ASPIRIN
     Dosage: AS DIRECTED
     Dates: start: 20121206

REACTIONS (1)
  - Malaise [Unknown]
